FAERS Safety Report 24034679 (Version 2)
Quarter: 2024Q3

REPORT INFORMATION
  Report Type: Spontaneous
  Country: US (occurrence: US)
  Receive Date: 20240701
  Receipt Date: 20240806
  Transmission Date: 20241017
  Serious: Yes (Other)
  Sender: BRISTOL MYERS SQUIBB
  Company Number: US-BRISTOL-MYERS SQUIBB COMPANY-2024-101738

PATIENT
  Age: 78 Year
  Sex: Male

DRUGS (2)
  1. LENALIDOMIDE [Suspect]
     Active Substance: LENALIDOMIDE
     Indication: Plasma cell myeloma
     Dosage: TAKE 1 CAPSULE BY MOUTH WITH WATER FOR 21 DAYS AND 7 DAYS OFF
     Route: 048
  2. LENALIDOMIDE [Suspect]
     Active Substance: LENALIDOMIDE
     Dosage: TAKE 1 CAPSULE BY MOUTH EVERY OTHER DAY ON DAYS 1-21 THEN 7 DAYS OFF EACH 28 DAY CYCLE
     Route: 048

REACTIONS (6)
  - Respiratory syncytial virus infection [Recovering/Resolving]
  - Hypersensitivity [Unknown]
  - Intentional dose omission [Unknown]
  - Cardiac valve disease [Unknown]
  - Red blood cell count decreased [Unknown]
  - Off label use [Unknown]
